FAERS Safety Report 22123258 (Version 1)
Quarter: 2023Q1

REPORT INFORMATION
  Report Type: Spontaneous
  Country: RU (occurrence: RU)
  Receive Date: 20230322
  Receipt Date: 20230322
  Transmission Date: 20230417
  Serious: Yes (Other)
  Sender: FDA-Public Use
  Company Number: None

PATIENT
  Age: 68 Week
  Sex: Male
  Weight: 95 kg

DRUGS (14)
  1. LEVOFLOXACIN [Suspect]
     Active Substance: LEVOFLOXACIN
     Indication: Liver abscess
     Dosage: 750 ?MOL/MG
     Route: 041
     Dates: start: 20230309, end: 20230315
  2. METRONIDAZOLE [Suspect]
     Active Substance: METRONIDAZOLE
     Indication: Liver abscess
     Dosage: 500 MG X 2 PERDAY
     Route: 042
     Dates: start: 20230309
  3. OMEPRAZOLE [Concomitant]
     Active Substance: OMEPRAZOLE
     Indication: Bacterial infection
     Dosage: 40 MG X 1 PER DAY
     Route: 048
     Dates: start: 20230309
  4. OMEPRAZOLE [Concomitant]
     Active Substance: OMEPRAZOLE
     Dosage: 03-MAR-2023/08-MAR-2023 (FROM MARCH 3, 2023 TO MARCH 6, 2023, 500 MG X 1 PER DAY, FROM MARCH 6, 2023
     Route: 048
     Dates: start: 20230306, end: 20230308
  5. No-shpa [Concomitant]
     Indication: Automatic bladder
     Dosage: 20 MG/ML ?SINGLE DOSE, DOSAGE ? 2 ML
     Dates: start: 20230309, end: 20230309
  6. ENOXAPARIN SODIUM [Concomitant]
     Active Substance: ENOXAPARIN SODIUM
     Indication: Thrombosis prophylaxis
     Dosage: 40 MG ? SINGLE DOSE
     Route: 058
     Dates: start: 20230309
  7. LEVOFLOXACIN [Concomitant]
     Active Substance: LEVOFLOXACIN
     Indication: Bacterial infection
     Dosage: 03-MAR-2023/08-MAR-2023 (FROM MARCH 3, 2023 TO MARCH 6, 2023, 500 MG X 1 PER DAY, FROM MARCH 6, 2023
     Route: 048
     Dates: start: 20230303, end: 20230306
  8. LEVOFLOXACIN [Concomitant]
     Active Substance: LEVOFLOXACIN
     Dosage: 03-MAR-2023/08-MAR-2023 (FROM MARCH 3, 2023 TO MARCH 6, 2023, 500 MG X 1 PER DAY, FROM MARCH 6, 2023
     Route: 048
     Dates: start: 20230306, end: 20230308
  9. Ketonal [Concomitant]
     Indication: Anaesthesia
     Dosage: 100 MG X 1 PER DAY
     Route: 030
     Dates: start: 20230309
  10. Ketonal [Concomitant]
     Dosage: 03-MAR-2023/08-MAR-2023 (FROM MARCH 3, 2023 TO MARCH 6, 2023, 500 MG X 1 PER DAY, FROM MARCH 6, 2023
     Route: 048
     Dates: start: 20230306, end: 20230308
  11. TRAMADOL [Concomitant]
     Active Substance: TRAMADOL
     Indication: Anaesthesia
     Dosage: 100 MG X 1 PER DAY
     Route: 030
     Dates: start: 20230309, end: 20230309
  12. TRAMADOL [Concomitant]
     Active Substance: TRAMADOL
     Dosage: 03-MAR-2023/08-MAR-2023 (FROM MARCH 3, 2023 TO MARCH 6, 2023, 500 MG X 1 PER DAY, FROM MARCH 6, 2023
     Route: 048
     Dates: start: 20230306, end: 20230308
  13. AMOXICILLIN\CLAVULANATE POTASSIUM [Concomitant]
     Active Substance: AMOXICILLIN\CLAVULANATE POTASSIUM
     Indication: Bacterial infection
     Dosage: 100 MG X 1 PER DAY
     Route: 048
     Dates: start: 20230225, end: 20230228
  14. AMOXICILLIN\CLAVULANATE POTASSIUM [Concomitant]
     Active Substance: AMOXICILLIN\CLAVULANATE POTASSIUM
     Dosage: 03-MAR-2023/08-MAR-2023 (FROM MARCH 3, 2023 TO MARCH 6, 2023, 500 MG X 1 PER DAY, FROM MARCH 6, 2023
     Route: 048
     Dates: start: 20230306, end: 20230308

REACTIONS (3)
  - Hypertensive crisis [Recovering/Resolving]
  - Paraesthesia [Recovering/Resolving]
  - Nausea [Recovering/Resolving]

NARRATIVE: CASE EVENT DATE: 20230315
